FAERS Safety Report 10459487 (Version 1)
Quarter: 2014Q3

REPORT INFORMATION
  Report Type: Spontaneous
  Country: US (occurrence: None)
  Receive Date: 20140915
  Receipt Date: 20140915
  Transmission Date: 20150326
  Serious: Yes (Life-Threatening)
  Sender: FDA-Public Use
  Company Number: US-H14001-14-00526

PATIENT
  Age: 62 Year
  Sex: Male

DRUGS (18)
  1. LAMOTRIGINE (LAMOTRIGINE) [Concomitant]
     Active Substance: LAMOTRIGINE
  2. ESCITALOPRAM [Suspect]
     Active Substance: ESCITALOPRAM OXALATE
     Indication: PRODUCT USED FOR UNKNOWN INDICATION
  3. INSULIN (INSULIN) [Concomitant]
     Active Substance: INSULIN NOS
  4. ASPIRIN (ACETYLSALICYLIC ACID) [Concomitant]
     Active Substance: ASPIRIN
  5. LISINOPRIL (LISINOPRIL) [Concomitant]
     Active Substance: LISINOPRIL
  6. ISOFLURANE (ISOFLURANE) [Concomitant]
  7. ATORVASTATIN (ATORVASTATIN) [Concomitant]
     Active Substance: ATORVASTATIN
  8. NITROGLYCERIN (GLYCERYL TRINITRATE) [Concomitant]
  9. MIDAZOLAM [Concomitant]
     Active Substance: MIDAZOLAM\MIDAZOLAM HYDROCHLORIDE
  10. FENTANYL (FENTANYL) [Concomitant]
     Active Substance: FENTANYL
  11. METHYLENE BLUE (METHYLTHIONINIUM CHLORIDE) [Suspect]
     Active Substance: METHYLENE BLUE
     Indication: VASOPLEGIA SYNDROME
     Dosage: 2 MG/KG (1 MG/KG,TWO CONSECUTIVE DOSES)
  12. METOPROLOL (METOPROLOL) [Concomitant]
     Active Substance: METOPROLOL
  13. IPRATROPIUM-ALBUTEROL (COMBIVENT) [Concomitant]
  14. VECURONIUM (VECURONIUM) [Concomitant]
  15. PHENYLEPHRINE (PHENYLEPHRINE) [Concomitant]
  16. VASOPRESSIN (VASOPRESSIN) [Concomitant]
  17. PROPOFOL (PROPOFOL) [Concomitant]
     Active Substance: PROPOFOL
  18. FUROSEMIDE (FUROSEMIDE) [Concomitant]
     Active Substance: FUROSEMIDE

REACTIONS (5)
  - Cardiac arrest [None]
  - Encephalopathy [None]
  - Pulseless electrical activity [None]
  - Serotonin syndrome [None]
  - Drug interaction [None]
